FAERS Safety Report 8359796-9 (Version None)
Quarter: 2012Q2

REPORT INFORMATION
  Report Type: 
  Country: None (occurrence: None)
  Receive Date: 20120515
  Receipt Date: 20120507
  Transmission Date: 20120825
  Serious: No
  Sender: FDA-Public Use
  Company Number: PHHY2012CH035574

PATIENT

DRUGS (5)
  1. ALLOPURINOL [Concomitant]
  2. TASIGNA [Suspect]
     Dosage: 1 DF, QD
     Route: 048
  3. DILTIAZEM HCL [Concomitant]
  4. TASIGNA [Suspect]
     Indication: CHRONIC MYELOID LEUKAEMIA
     Dosage: 1 DF, BID
     Route: 048
     Dates: start: 20120301
  5. RASILEZ HCT [Concomitant]

REACTIONS (5)
  - PRURITUS [None]
  - RASH MACULO-PAPULAR [None]
  - HYPERSENSITIVITY [None]
  - CONSTIPATION [None]
  - PRURITUS GENERALISED [None]
